FAERS Safety Report 5592314-7 (Version None)
Quarter: 2008Q1

REPORT INFORMATION
  Report Type: 
  Country: None (occurrence: None)
  Receive Date: 20080111
  Receipt Date: 20071231
  Transmission Date: 20080703
  Serious: Yes (Hospitalization, Other)
  Sender: FDA-Public Use
  Company Number: 2008AP000027

PATIENT
  Age: 37 Year
  Sex: Female

DRUGS (7)
  1. SERTRALINE HYDROCHLORIDE [Suspect]
     Indication: BIPOLAR I DISORDER
     Dosage: 100 MG;PO;QD; 50 MG;PO;QD
     Route: 048
  2. SERTRALINE HYDROCHLORIDE [Suspect]
     Indication: MENTAL DISORDER
     Dosage: 100 MG;PO;QD; 50 MG;PO;QD
     Route: 048
  3. DIVALPROEX SODIUM                    (VALPROATE SEMISODIUM) [Concomitant]
  4. ZOPICLONE          (ZOPICLONE) [Concomitant]
  5. RISPERIDONE [Concomitant]
  6. QUETIAPINE FUMARATE [Concomitant]
  7. DIVALPROEX SODIUM          (VALPROATE SEMISODIUM) [Concomitant]

REACTIONS (7)
  - BIPOLAR I DISORDER [None]
  - DRUG INEFFECTIVE [None]
  - ENERGY INCREASED [None]
  - HYPOMANIA [None]
  - JUDGEMENT IMPAIRED [None]
  - MEAN CELL VOLUME INCREASED [None]
  - SUICIDAL IDEATION [None]
